FAERS Safety Report 10183705 (Version 1)
Quarter: 2014Q2

REPORT INFORMATION
  Report Type: Spontaneous
  Country: GB (occurrence: GB)
  Receive Date: 20140520
  Receipt Date: 20140520
  Transmission Date: 20141212
  Serious: Yes (Hospitalization, Disabling, Other)
  Sender: FDA-Public Use
  Company Number: GB-WATSON-2014-10078

PATIENT
  Age: 60 Year
  Sex: Male
  Weight: 102 kg

DRUGS (2)
  1. NAPROXEN (UNKNOWN) [Suspect]
     Indication: MUSCULOSKELETAL PAIN
     Dosage: 500 MG, BID; INDICATION:FOOT CONDITION DURING 2013 AND SEVERE SHOULDER PAIN IN 2014 DUE TO A FALL.
     Route: 048
     Dates: start: 201403
  2. CO-CODAMOL [Concomitant]
     Indication: MUSCULOSKELETAL PAIN
     Dosage: UNK
     Route: 065

REACTIONS (4)
  - Presyncope [Unknown]
  - Gastrointestinal ulcer [Unknown]
  - Gastrointestinal haemorrhage [Unknown]
  - Drug ineffective [Unknown]
